FAERS Safety Report 5093452-8 (Version None)
Quarter: 2006Q3

REPORT INFORMATION
  Report Type: 
  Country: None (occurrence: None)
  Receive Date: 20060828
  Receipt Date: 20060814
  Transmission Date: 20061208
  Serious: Yes (Other)
  Sender: FDA-Public Use
  Company Number: MIN-00071

PATIENT

DRUGS (4)
  1. MINOCYCLINE HCL [Suspect]
     Indication: NEOPLASM MALIGNANT
     Dosage: 100 MG, TWICE DAILY, ORAL
     Route: 048
  2. VINBLASTINE [Concomitant]
  3. CYCLOPHOSPHAMIDE [Concomitant]
  4. ROFECOXIB [Concomitant]

REACTIONS (4)
  - DRUG HYPERSENSITIVITY [None]
  - HEPATITIS [None]
  - MYOSITIS [None]
  - RENAL FAILURE ACUTE [None]
